FAERS Safety Report 9968280 (Version 1)
Quarter: 2014Q1

REPORT INFORMATION
  Report Type: Report from Study
  Country: US (occurrence: US)
  Receive Date: 20140306
  Receipt Date: 20140306
  Transmission Date: 20141002
  Serious: No
  Sender: FDA-Public Use
  Company Number: US-ABBVIE-13P-163-1140495-00

PATIENT
  Age: 50 Year
  Sex: Female

DRUGS (7)
  1. HUMIRA [Suspect]
     Indication: COLITIS ULCERATIVE
     Dosage: DAY 1
     Dates: start: 20130814
  2. XANAX [Concomitant]
     Indication: ANXIETY
     Dosage: ONE TO TWO ONCE A DAY AS REQUIRED
  3. PRO AIR [Concomitant]
     Indication: PRODUCT USED FOR UNKNOWN INDICATION
  4. OMEPRAZOLE [Concomitant]
     Indication: PRODUCT USED FOR UNKNOWN INDICATION
     Dosage: AT BEDTIME
  5. TRILIGEST FE BCP [Concomitant]
     Indication: PRODUCT USED FOR UNKNOWN INDICATION
  6. VICOPROFEN [Concomitant]
     Indication: MIGRAINE
     Dosage: 7.5/200 MG AS REQUIRED FOR MIGRAINE HEADACHE ONLY
  7. TRAMADOL [Concomitant]
     Indication: BACK PAIN
     Dosage: ONCE EVERY 4-6 HOURS AS REQUIRED

REACTIONS (3)
  - Cold sweat [Unknown]
  - Nausea [Recovered/Resolved]
  - Pain [Unknown]
